FAERS Safety Report 5904218-8 (Version None)
Quarter: 2008Q4

REPORT INFORMATION
  Report Type: 
  Country: None (occurrence: None)
  Receive Date: 20081001
  Receipt Date: 20080918
  Transmission Date: 20090506
  Serious: Yes (Hospitalization)
  Sender: FDA-Public Use
  Company Number: JP-BAYER-200812202BYL

PATIENT
  Age: 76 Year
  Sex: Male
  Weight: 60 kg

DRUGS (7)
  1. NEXAVAR [Suspect]
     Indication: RENAL CELL CARCINOMA STAGE IV
     Dosage: TOTAL DAILY DOSE: 800 MG  UNIT DOSE: 200 MG
     Route: 048
     Dates: start: 20080626, end: 20080703
  2. NEXAVAR [Suspect]
     Dosage: UNIT DOSE: 200 MG
     Route: 048
     Dates: start: 20080715
  3. EVIPROSTAT [Concomitant]
     Indication: ONCOLOGIC COMPLICATION
     Route: 048
     Dates: start: 20070109, end: 20080724
  4. LANSOPRAZOLE [Concomitant]
     Indication: PROPHYLAXIS AGAINST GASTROINTESTINAL ULCER
     Route: 048
     Dates: start: 20080216
  5. DEPAKENE [Concomitant]
     Indication: RENAL CELL CARCINOMA STAGE IV
     Route: 048
     Dates: start: 20080215
  6. BUP-4 [Concomitant]
     Indication: ONCOLOGIC COMPLICATION
     Route: 048
     Dates: start: 20070109, end: 20080724
  7. STOMILASE [Concomitant]
     Indication: ONCOLOGIC COMPLICATION
     Route: 048
     Dates: start: 20080418, end: 20080724

REACTIONS (2)
  - PALMAR-PLANTAR ERYTHRODYSAESTHESIA SYNDROME [None]
  - TUBERCULOSIS [None]
